FAERS Safety Report 14854125 (Version 32)
Quarter: 2021Q2

REPORT INFORMATION
  Report Type: Other
  Country: DE (occurrence: DE)
  Receive Date: 20180507
  Receipt Date: 20210625
  Transmission Date: 20210716
  Serious: Yes (Death, Hospitalization)
  Sender: FDA-Public Use
  Company Number: DE-ROCHE-2114617

PATIENT
  Age: 73 Year
  Sex: Female
  Weight: 69 kg

DRUGS (57)
  1. BISOPROLOL FUMARATE. [Suspect]
     Active Substance: BISOPROLOL FUMARATE
     Dosage: UNK
     Route: 048
     Dates: start: 20010714, end: 20010714
  2. ZAROXOLYN [Suspect]
     Active Substance: METOLAZONE
     Indication: HYPERTENSION
     Dosage: MOST RECENT DOSE:13/JUL/2001
     Route: 048
     Dates: start: 20010712
  3. DECORTIN [Suspect]
     Active Substance: PREDNISONE
     Indication: DYSPNOEA
     Dosage: LAST DOSE ON 03/JUL/2001
     Route: 042
     Dates: start: 20010703
  4. NORVASC [Suspect]
     Active Substance: AMLODIPINE BESYLATE
     Indication: CORONARY ARTERY DISEASE
     Dosage: MOST RECENT DOSE: 14/JUL/2001
     Route: 048
     Dates: start: 20010703
  5. PARACETAMOL [Suspect]
     Active Substance: ACETAMINOPHEN
     Indication: PAIN
     Dosage: MOST RECENT DOSE:11/JUL/2001
     Route: 048
     Dates: start: 20010711
  6. EUNERPAN [Suspect]
     Active Substance: MELPERONE HYDROCHLORIDE
     Indication: RESTLESSNESS
     Dosage: MOST RECENT DOSE:12/JUL/2001
     Route: 048
     Dates: start: 20010706
  7. AMPHOTERICIN B. [Suspect]
     Active Substance: AMPHOTERICIN B
     Indication: ANTIFUNGAL PROPHYLAXIS
     Dosage: LAST DOSE ON 14/JUL/2001
     Route: 048
     Dates: start: 20010703
  8. ISOSORBIDE MONONITRATE. [Suspect]
     Active Substance: ISOSORBIDE MONONITRATE
     Indication: CORONARY ARTERY DISEASE
     Dosage: MOST RECENT DOSE:14/JUL/2001
     Route: 048
     Dates: start: 20010703
  9. ACETYLDIGOXIN [Suspect]
     Active Substance: .ALPHA.-ACETYLDIGOXIN
     Indication: CORONARY ARTERY DISEASE
     Route: 048
  10. NOVODIGAL (.BETA.?ACETYLDIGOXIN) [Suspect]
     Active Substance: .BETA.-ACETYLDIGOXIN
     Indication: CORONARY ARTERY DISEASE
     Dosage: DOSE REPORTED AS 1 DOSE FORM
     Route: 048
     Dates: start: 20010703, end: 20010714
  11. LANTUS [Suspect]
     Active Substance: INSULIN GLARGINE
     Indication: DIABETES MELLITUS
     Dosage: MOST RECENT DOSE:29/JUN/2001
     Route: 058
     Dates: start: 20010616
  12. DIGOXIN. [Suspect]
     Active Substance: DIGOXIN
     Indication: CORONARY ARTERY DISEASE
     Dosage: MOST RECENT DOSE:14/JUL/2001
     Route: 048
     Dates: start: 20010703
  13. BISOPROLOL FUMARATE. [Suspect]
     Active Substance: BISOPROLOL FUMARATE
     Indication: CORONARY ARTERY DISEASE
     Route: 048
     Dates: start: 20010616, end: 20010714
  14. YEAST DRIED [Suspect]
     Active Substance: YEAST
     Route: 048
  15. NORVASC [Suspect]
     Active Substance: AMLODIPINE BESYLATE
     Dosage: MOST RECENT DOSE: 14/JUL/2001
     Route: 048
     Dates: start: 20010703
  16. METOCLOPRAMIDE HYDROCHLORIDE. [Suspect]
     Active Substance: METOCLOPRAMIDE HYDROCHLORIDE
     Dosage: MOST RECENT DOSE:12/JUL/2001
     Route: 048
     Dates: start: 20010704
  17. RAMIPRIL. [Suspect]
     Active Substance: RAMIPRIL
     Dosage: MOST RECENT DOSE : 14/JUL/2001
     Route: 048
     Dates: start: 20010616
  18. DIGOXIN. [Suspect]
     Active Substance: DIGOXIN
     Route: 048
     Dates: start: 20010703, end: 20010714
  19. METFORMIN HYDROCHLORIDE. [Suspect]
     Active Substance: METFORMIN HYDROCHLORIDE
     Dosage: MOST RECENT DOSE:14/JUL/2001
     Route: 048
     Dates: start: 20010616
  20. DIAZEPAM. [Suspect]
     Active Substance: DIAZEPAM
     Indication: RESTLESSNESS
     Dosage: MOST RECENT DOSE: 03/JUL/2001
     Route: 048
     Dates: start: 20010616
  21. CEFTRIAXONE. [Suspect]
     Active Substance: CEFTRIAXONE
     Indication: PYREXIA
     Dosage: MOST RECENT DOSE: 03/JUL/2001
     Route: 042
     Dates: start: 20010629
  22. YEAST DRIED [Suspect]
     Active Substance: YEAST
     Indication: DIARRHOEA
     Route: 048
     Dates: start: 20010711, end: 20010714
  23. CAPTOPRIL. [Suspect]
     Active Substance: CAPTOPRIL
     Indication: CORONARY ARTERY DISEASE
     Dosage: MOST RECENT DOSE:14/JUL/2001
     Route: 048
     Dates: start: 20010616
  24. MOLSIDOMINE [Suspect]
     Active Substance: MOLSIDOMINE
     Dosage: 16 MG, EVERY 12 DAYS
     Route: 048
     Dates: start: 20010703
  25. METOCLOPRAMIDE HYDROCHLORIDE. [Suspect]
     Active Substance: METOCLOPRAMIDE HYDROCHLORIDE
     Indication: NAUSEA
     Dosage: MOST RECENT DOSE:12/JUL/2001
     Route: 048
     Dates: start: 20010704
  26. PREDNISOLONE SODIUM SUCCINATE [Suspect]
     Active Substance: PREDNISOLONE SODIUM SUCCINATE
     Indication: DYSPNOEA
     Dosage: MOST RECENT DOSE:03/JUL/2001
     Route: 042
     Dates: start: 20010703
  27. PLAVIX [Suspect]
     Active Substance: CLOPIDOGREL BISULFATE
     Indication: CORONARY ARTERY DISEASE
     Dosage: RECENT DOSE ON 14/JUL/2001
     Route: 048
     Dates: start: 20010704
  28. ACETYLSALICYLIC ACID [Suspect]
     Active Substance: ASPIRIN
     Indication: CORONARY ARTERY DISEASE
     Dosage: RECENT DOSE: 14/JUL/2001
     Route: 048
     Dates: start: 20010616
  29. FRAGMIN [Suspect]
     Active Substance: DALTEPARIN SODIUM
     Indication: THROMBOSIS PROPHYLAXIS
     Dosage: LAST DOSE ON 14/JUL/2001
     Route: 058
     Dates: start: 20010703, end: 20010714
  30. IRENAT [Suspect]
     Active Substance: SODIUM PERCHLORATE
     Dosage: (TOTAL DAILY DOSE RANGED FROM 1376.8 MG TO 2065.2 MG))
     Route: 048
     Dates: start: 20010616, end: 20010714
  31. PANTOZOL [Suspect]
     Active Substance: PANTOPRAZOLE SODIUM
     Indication: PROPHYLAXIS
     Dosage: 40 MG, (DOSE DECREASED FROM 80 TO 40 MG DAILY)?MOST RECENT DOSE:14/JUL/2001
     Route: 048
     Dates: start: 20010614
  32. PANTOZOL [Suspect]
     Active Substance: PANTOPRAZOLE SODIUM
     Route: 048
     Dates: start: 20010703
  33. CARBIMAZOLE [Suspect]
     Active Substance: CARBIMAZOLE
     Indication: HYPERTHYROIDISM
     Dosage: 30 MG, (DOSE RANGED FROM 20?30 MG DAILY)?MOST RECENT DOSE:14/JUL/2001
     Route: 048
     Dates: start: 20010621
  34. AMPHOTERICIN B. [Suspect]
     Active Substance: AMPHOTERICIN B
     Dosage: LAST DOSE ON 14/JUL/2001
     Route: 048
     Dates: start: 20010703
  35. RAMIPRIL. [Suspect]
     Active Substance: RAMIPRIL
     Indication: CORONARY ARTERY DISEASE
     Dosage: MOST RECENT DOSE : 14/JUL/2001
     Route: 048
     Dates: start: 20010616
  36. DIAZEPAM. [Suspect]
     Active Substance: DIAZEPAM
     Dosage: MOST RECENT DOSE: 03/JUL/2001
     Route: 048
     Dates: start: 20010616
  37. GLIMEPIRIDE. [Concomitant]
     Active Substance: GLIMEPIRIDE
     Indication: DIABETES MELLITUS
     Dosage: 16 IU,QD
     Route: 048
     Dates: start: 20010616, end: 20010703
  38. LEXOTANIL [Concomitant]
     Active Substance: BROMAZEPAM
  39. DECORTIN [Suspect]
     Active Substance: PREDNISONE
     Indication: RESTLESSNESS
  40. PANTOZOL [Suspect]
     Active Substance: PANTOPRAZOLE SODIUM
     Indication: DYSPNOEA
     Route: 048
     Dates: start: 20010716
  41. POTASSIUM CHLORIDE. [Concomitant]
     Active Substance: POTASSIUM CHLORIDE
     Indication: ELECTROLYTE IMBALANCE
     Route: 048
     Dates: start: 20010703, end: 20010714
  42. TRANXENE [Suspect]
     Active Substance: CLORAZEPATE DIPOTASSIUM
     Indication: RESTLESSNESS
     Dosage: MOST RECENT DOSE:14/JUL/2001
     Route: 048
     Dates: start: 20010710
  43. ASPIRIN. [Suspect]
     Active Substance: ASPIRIN
     Indication: CORONARY ARTERY DISEASE
     Dosage: LAST DOSE ON 14/JUL/2001
     Route: 048
     Dates: start: 20010616, end: 20010714
  44. CONCOR [Suspect]
     Active Substance: BISOPROLOL FUMARATE
     Indication: CORONARY ARTERY DISEASE
     Dosage: LAST DOSE ON 14/JUL/2001
     Route: 048
     Dates: start: 20010616
  45. HALDOL [Suspect]
     Active Substance: HALOPERIDOL
     Indication: RESTLESSNESS
     Dosage: UNIT DOSE: 3 [DRP] UNK?RECENT DOSE ON 14/JUL/2001
     Route: 048
     Dates: start: 20010713
  46. DIGOXIN. [Suspect]
     Active Substance: DIGOXIN
     Route: 048
  47. CIPROFLOXACIN HYDROCHLORIDE. [Suspect]
     Active Substance: CIPROFLOXACIN HYDROCHLORIDE
     Indication: CHOLECYSTITIS
     Route: 048
     Dates: start: 20010620, end: 20010628
  48. CIPROFLOXACIN HYDROCHLORIDE. [Suspect]
     Active Substance: CIPROFLOXACIN HYDROCHLORIDE
     Route: 048
     Dates: start: 20010710, end: 20010711
  49. AMARYL [Suspect]
     Active Substance: GLIMEPIRIDE
     Indication: DIABETES MELLITUS
     Dosage: MOST RECENT DOSE: 03/JUL/2001
     Route: 048
     Dates: start: 20010616
  50. TETRACYCLINE HYDROCHLORIDE. [Suspect]
     Active Substance: TETRACYCLINE HYDROCHLORIDE
     Indication: ANTIFUNGAL PROPHYLAXIS
     Dosage: MOST RECNT DOSE:14/JUL/2001
     Route: 048
     Dates: start: 20010703
  51. IRENAT [Suspect]
     Active Substance: SODIUM PERCHLORATE
     Indication: HYPERTHYROIDISM
     Dosage: 688 MG, (TOTAL DAILY DOSE RANGED FROM 1376.8 MG TO 2065.2 MG)?MOST RECENT DOSE: 14/JUL/2001
     Route: 048
     Dates: start: 20010618
  52. EUNERPAN [Suspect]
     Active Substance: MELPERONE HYDROCHLORIDE
     Dosage: MOST RECENT DOSE:12/JUL/2001
     Route: 048
     Dates: start: 20010706
  53. MOLSIDOMINE [Suspect]
     Active Substance: MOLSIDOMINE
     Indication: CORONARY ARTERY DISEASE
     Dosage: 8 MG, (DOSE REDUCED FROM 16 TO 8 MG DAILY)?RECENT DOSE ON 14/JUL/2001
     Route: 048
     Dates: start: 20010703
  54. PERENTEROL [Suspect]
     Active Substance: SACCHAROMYCES CEREVISIAE
     Indication: DIARRHOEA
     Dosage: 300 MG (100 MG TO 300MG)?MOST RECENT DOSE:14/JUL/2001
     Route: 048
     Dates: start: 20010711
  55. SORTIS [Suspect]
     Active Substance: ATORVASTATIN
     Indication: HYPERLIPIDAEMIA
     Dosage: MOST RECENT DOSE: 03/JUL/2001
     Route: 048
     Dates: start: 20010616
  56. METFORMIN HYDROCHLORIDE. [Suspect]
     Active Substance: METFORMIN HYDROCHLORIDE
     Indication: DIABETES MELLITUS
     Dosage: MOST RECENT DOSE:14/JUL/2001
     Route: 048
     Dates: start: 20010616
  57. LASIX [Suspect]
     Active Substance: FUROSEMIDE
     Indication: HYPERTENSION
     Dosage: 120 MG, DOSE RANGED FROM 80 MG?120 MG DAILY?MOST RECENT DOSE:14/JUL/2001
     Route: 042
     Dates: start: 20010703

REACTIONS (14)
  - Electrolyte imbalance [Fatal]
  - Respiratory disorder [Fatal]
  - Hyperthyroidism [Fatal]
  - Dermatitis exfoliative [Fatal]
  - Nausea [Fatal]
  - Blister [Fatal]
  - Multiple organ dysfunction syndrome [Fatal]
  - Diarrhoea [Fatal]
  - Cholecystitis [Fatal]
  - Condition aggravated [Fatal]
  - Cholelithiasis [Fatal]
  - Toxic epidermal necrolysis [Fatal]
  - Erythema [Fatal]
  - Restlessness [Fatal]

NARRATIVE: CASE EVENT DATE: 20010704
